FAERS Safety Report 8264762-8 (Version None)
Quarter: 2012Q2

REPORT INFORMATION
  Report Type: 
  Country: None (occurrence: None)
  Receive Date: 20120406
  Receipt Date: 20120327
  Transmission Date: 20120825
  Serious: Yes (Hospitalization)
  Sender: FDA-Public Use
  Company Number: US-JNJFOC-20120314392

PATIENT
  Sex: Female
  Weight: 52.6 kg

DRUGS (4)
  1. MERCAPTOPURINE [Concomitant]
  2. ANTIBIOTICS FOR IBD [Concomitant]
     Indication: INFLAMMATORY BOWEL DISEASE
  3. INFLIXIMAB, RECOMBINANT [Suspect]
     Indication: INFLAMMATORY BOWEL DISEASE
     Route: 042
     Dates: start: 20071010, end: 20090727
  4. ADALIMUMAB [Concomitant]
     Dates: start: 20090829

REACTIONS (2)
  - FREQUENT BOWEL MOVEMENTS [None]
  - ABDOMINAL PAIN [None]
